FAERS Safety Report 20850470 (Version 1)
Quarter: 2022Q2

REPORT INFORMATION
  Report Type: Spontaneous
  Country: JP (occurrence: None)
  Receive Date: 20220519
  Receipt Date: 20220519
  Transmission Date: 20220721
  Serious: Yes (Life-Threatening, Hospitalization, Other)
  Sender: FDA-Public Use
  Company Number: 2022A189948

PATIENT
  Sex: Male
  Weight: 3 kg

DRUGS (51)
  1. QUETIAPINE [Suspect]
     Active Substance: QUETIAPINE
     Indication: Photophobia
     Route: 064
     Dates: start: 20210208, end: 20210307
  2. QUETIAPINE [Suspect]
     Active Substance: QUETIAPINE
     Indication: Obsessive-compulsive disorder
     Route: 064
     Dates: start: 20210208, end: 20210307
  3. QUETIAPINE [Suspect]
     Active Substance: QUETIAPINE
     Indication: Photophobia
     Route: 065
  4. QUETIAPINE [Suspect]
     Active Substance: QUETIAPINE
     Indication: Obsessive-compulsive disorder
     Route: 065
  5. QUETIAPINE [Suspect]
     Active Substance: QUETIAPINE
     Indication: Photophobia
     Route: 064
     Dates: start: 20210308, end: 20210420
  6. QUETIAPINE [Suspect]
     Active Substance: QUETIAPINE
     Indication: Obsessive-compulsive disorder
     Route: 064
     Dates: start: 20210308, end: 20210420
  7. QUETIAPINE [Suspect]
     Active Substance: QUETIAPINE
     Indication: Photophobia
     Route: 065
  8. QUETIAPINE [Suspect]
     Active Substance: QUETIAPINE
     Indication: Obsessive-compulsive disorder
     Route: 065
  9. ZOLPIDEM TARTRATE [Suspect]
     Active Substance: ZOLPIDEM TARTRATE
     Indication: Migraine
     Route: 064
     Dates: start: 20210118, end: 20210124
  10. ZOLPIDEM TARTRATE [Suspect]
     Active Substance: ZOLPIDEM TARTRATE
     Indication: Obsessive-compulsive disorder
     Route: 064
     Dates: start: 20210118, end: 20210124
  11. ZOLPIDEM TARTRATE [Suspect]
     Active Substance: ZOLPIDEM TARTRATE
     Indication: Photophobia
     Route: 064
     Dates: start: 20210118, end: 20210124
  12. ZOLPIDEM TARTRATE [Suspect]
     Active Substance: ZOLPIDEM TARTRATE
     Indication: Migraine
     Route: 064
     Dates: start: 20210125, end: 20210420
  13. ZOLPIDEM TARTRATE [Suspect]
     Active Substance: ZOLPIDEM TARTRATE
     Indication: Obsessive-compulsive disorder
     Route: 064
     Dates: start: 20210125, end: 20210420
  14. ZOLPIDEM TARTRATE [Suspect]
     Active Substance: ZOLPIDEM TARTRATE
     Indication: Photophobia
     Route: 064
     Dates: start: 20210125, end: 20210420
  15. ZOLPIDEM TARTRATE [Suspect]
     Active Substance: ZOLPIDEM TARTRATE
     Indication: Migraine
     Route: 065
  16. ZOLPIDEM TARTRATE [Suspect]
     Active Substance: ZOLPIDEM TARTRATE
     Indication: Obsessive-compulsive disorder
     Route: 065
  17. ZOLPIDEM TARTRATE [Suspect]
     Active Substance: ZOLPIDEM TARTRATE
     Indication: Photophobia
     Route: 065
  18. VALPROATE SODIUM [Suspect]
     Active Substance: VALPROATE SODIUM
     Indication: Migraine
     Route: 064
     Dates: start: 20201211, end: 20220108
  19. CLOTIAZEPAM [Suspect]
     Active Substance: CLOTIAZEPAM
     Indication: Photophobia
     Route: 064
     Dates: start: 20201225, end: 20210131
  20. CLOTIAZEPAM [Suspect]
     Active Substance: CLOTIAZEPAM
     Indication: Obsessive-compulsive disorder
     Route: 064
     Dates: start: 20201225, end: 20210131
  21. CLOTIAZEPAM [Suspect]
     Active Substance: CLOTIAZEPAM
     Indication: Photophobia
     Route: 064
     Dates: start: 20210201, end: 20210420
  22. CLOTIAZEPAM [Suspect]
     Active Substance: CLOTIAZEPAM
     Indication: Obsessive-compulsive disorder
     Route: 064
     Dates: start: 20210201, end: 20210420
  23. AMITRIPTYLINE [Suspect]
     Active Substance: AMITRIPTYLINE
     Indication: Photophobia
     Route: 064
     Dates: start: 20210108, end: 20210124
  24. AMITRIPTYLINE [Suspect]
     Active Substance: AMITRIPTYLINE
     Indication: Obsessive-compulsive disorder
     Route: 064
     Dates: start: 20210108, end: 20210124
  25. AMITRIPTYLINE [Suspect]
     Active Substance: AMITRIPTYLINE
     Indication: Photophobia
     Route: 064
     Dates: start: 20210125, end: 20210420
  26. AMITRIPTYLINE [Suspect]
     Active Substance: AMITRIPTYLINE
     Indication: Obsessive-compulsive disorder
     Route: 064
     Dates: start: 20210125, end: 20210420
  27. SERTRALINE [Suspect]
     Active Substance: SERTRALINE HYDROCHLORIDE
     Indication: Photophobia
     Route: 064
     Dates: start: 20210118, end: 20210131
  28. SERTRALINE [Suspect]
     Active Substance: SERTRALINE HYDROCHLORIDE
     Indication: Obsessive-compulsive disorder
     Route: 064
     Dates: start: 20210118, end: 20210131
  29. SERTRALINE [Suspect]
     Active Substance: SERTRALINE HYDROCHLORIDE
     Indication: Photophobia
     Route: 064
     Dates: start: 20210201, end: 20210207
  30. SERTRALINE [Suspect]
     Active Substance: SERTRALINE HYDROCHLORIDE
     Indication: Obsessive-compulsive disorder
     Route: 064
     Dates: start: 20210201, end: 20210207
  31. SERTRALINE [Suspect]
     Active Substance: SERTRALINE HYDROCHLORIDE
     Indication: Photophobia
     Route: 064
     Dates: start: 20210208, end: 20210420
  32. SERTRALINE [Suspect]
     Active Substance: SERTRALINE HYDROCHLORIDE
     Indication: Obsessive-compulsive disorder
     Route: 064
     Dates: start: 20210208, end: 20210420
  33. LORAZEPAM [Suspect]
     Active Substance: LORAZEPAM
     Indication: Photophobia
     Route: 064
     Dates: start: 20210125, end: 20210420
  34. LORAZEPAM [Suspect]
     Active Substance: LORAZEPAM
     Indication: Obsessive-compulsive disorder
     Route: 064
     Dates: start: 20210125, end: 20210420
  35. LORAZEPAM [Suspect]
     Active Substance: LORAZEPAM
     Indication: Photophobia
     Route: 065
  36. LORAZEPAM [Suspect]
     Active Substance: LORAZEPAM
     Indication: Obsessive-compulsive disorder
     Route: 065
  37. BROMAZEPAM [Suspect]
     Active Substance: BROMAZEPAM
     Indication: Photophobia
     Route: 064
     Dates: start: 20210201, end: 20210420
  38. BROMAZEPAM [Suspect]
     Active Substance: BROMAZEPAM
     Indication: Obsessive-compulsive disorder
     Route: 064
     Dates: start: 20210201, end: 20210420
  39. BROMAZEPAM [Suspect]
     Active Substance: BROMAZEPAM
     Indication: Photophobia
     Route: 065
  40. BROMAZEPAM [Suspect]
     Active Substance: BROMAZEPAM
     Indication: Obsessive-compulsive disorder
     Route: 065
  41. FLUNITRAZEPAM [Suspect]
     Active Substance: FLUNITRAZEPAM
     Indication: Photophobia
     Route: 064
     Dates: start: 20210201, end: 20210420
  42. FLUNITRAZEPAM [Suspect]
     Active Substance: FLUNITRAZEPAM
     Indication: Obsessive-compulsive disorder
     Route: 064
     Dates: start: 20210201, end: 20210420
  43. FLUNITRAZEPAM [Suspect]
     Active Substance: FLUNITRAZEPAM
     Indication: Photophobia
     Route: 065
  44. FLUNITRAZEPAM [Suspect]
     Active Substance: FLUNITRAZEPAM
     Indication: Obsessive-compulsive disorder
     Route: 065
  45. LUNESTA [Suspect]
     Active Substance: ESZOPICLONE
     Indication: Photophobia
     Route: 064
     Dates: start: 20210208, end: 20210420
  46. LUNESTA [Suspect]
     Active Substance: ESZOPICLONE
     Indication: Obsessive-compulsive disorder
     Route: 064
     Dates: start: 20210208, end: 20210420
  47. LUNESTA [Suspect]
     Active Substance: ESZOPICLONE
     Indication: Photophobia
     Route: 065
  48. LUNESTA [Suspect]
     Active Substance: ESZOPICLONE
     Indication: Obsessive-compulsive disorder
     Route: 065
  49. POLARAMINE [Concomitant]
     Active Substance: DEXCHLORPHENIRAMINE MALEATE
     Indication: Product used for unknown indication
     Route: 064
     Dates: start: 20210215, end: 20210420
  50. ALINAMIN F [Concomitant]
     Active Substance: FURSULTIAMINE HYDROCHLORIDE
     Indication: Product used for unknown indication
     Route: 064
     Dates: start: 20210125, end: 20210420
  51. FERROUS SULFATE [Concomitant]
     Active Substance: FERROUS SULFATE
     Indication: Product used for unknown indication
     Route: 064
     Dates: start: 20210405, end: 20210420

REACTIONS (3)
  - Neonatal respiratory distress syndrome [Recovered/Resolved]
  - Drug withdrawal syndrome neonatal [Recovered/Resolved]
  - Foetal exposure during pregnancy [Unknown]

NARRATIVE: CASE EVENT DATE: 20210118
